FAERS Safety Report 9455377 (Version 2)
Quarter: 2013Q3

REPORT INFORMATION
  Report Type: Report from Study
  Country: JP (occurrence: JP)
  Receive Date: 20130813
  Receipt Date: 20130821
  Transmission Date: 20140515
  Serious: Yes (Hospitalization)
  Sender: FDA-Public Use
  Company Number: PHHY2013JP085868

PATIENT
  Age: 45 Year
  Sex: Male
  Weight: 61 kg

DRUGS (3)
  1. TASIGNA [Suspect]
     Indication: CHRONIC MYELOID LEUKAEMIA
     Dosage: 600 MG/DAY
     Route: 048
     Dates: start: 20110915
  2. TASIGNA [Suspect]
     Dosage: 600 MG/DAY
     Route: 048
     Dates: start: 201209, end: 201308
  3. BLOPRESS [Concomitant]
     Dosage: 4 MG
     Dates: start: 20130813

REACTIONS (5)
  - Cerebral infarction [Recovering/Resolving]
  - Sensory loss [Unknown]
  - Muscular weakness [Unknown]
  - Diplegia [Recovering/Resolving]
  - Ataxia [Unknown]
